FAERS Safety Report 5857206-4 (Version None)
Quarter: 2008Q3

REPORT INFORMATION
  Report Type: 
  Country: None (occurrence: None)
  Receive Date: 20080821
  Receipt Date: 20080808
  Transmission Date: 20090109
  Serious: Yes (Life-Threatening)
  Sender: FDA-Public Use
  Company Number: PHHY2008IN17359

PATIENT
  Age: 80 Year
  Sex: Female

DRUGS (3)
  1. VISUDYNE [Suspect]
     Indication: MACULAR DEGENERATION
     Dosage: 6 MG/M^2 ONCE IV
     Route: 042
  2. LASIX [Concomitant]
  3. OXYGEN [Concomitant]

REACTIONS (1)
  - PULMONARY OEDEMA [None]
